FAERS Safety Report 18689231 (Version 7)
Quarter: 2023Q2

REPORT INFORMATION
  Report Type: Spontaneous
  Country: ES (occurrence: ES)
  Receive Date: 20201231
  Receipt Date: 20230427
  Transmission Date: 20230721
  Serious: Yes (Hospitalization, Other)
  Sender: FDA-Public Use
  Company Number: None

PATIENT
  Age: 64 Year
  Sex: Male

DRUGS (2)
  1. ERTAPENEM SODIUM [Suspect]
     Active Substance: ERTAPENEM SODIUM
     Indication: Prostatitis
     Dosage: 1 GRAM, Q24H
     Route: 042
     Dates: start: 20201113, end: 20201130
  2. ERTAPENEM SODIUM [Suspect]
     Active Substance: ERTAPENEM SODIUM
     Dosage: 1 GRAM, ONCE DAILY; 28-DAY TREATMENT
     Route: 042
     Dates: start: 202012

REACTIONS (2)
  - Toxic encephalopathy [Recovering/Resolving]
  - Product use in unapproved indication [Unknown]
